FAERS Safety Report 7701385 (Version 7)
Quarter: 2013Q1

REPORT INFORMATION
  Report Type: Spontaneous
  Country: GB (occurrence: GB)
  Receive Date: 20101209
  Receipt Date: 20130328
  Transmission Date: 20140127
  Serious: Yes (Hospitalization, Other)
  Sender: FDA-Public Use
  Company Number: PHFR2010GB05561

PATIENT
  Age: 63 Year
  Sex: Female

DRUGS (16)
  1. CLOZARIL [Suspect]
     Indication: SCHIZOPHRENIA
     Route: 048
     Dates: start: 20010426
  2. CLOZARIL [Suspect]
     Dosage: 250 MG, BID
     Route: 048
  3. CLOZARIL [Suspect]
     Route: 048
     Dates: start: 20110608
  4. CLOZARIL [Suspect]
     Dosage: 475 MG, DAILY
     Route: 048
  5. HYOSCINE [Concomitant]
     Dosage: 30 UG, TID
     Route: 048
  6. SIMVASTATIN [Concomitant]
     Indication: HYPERCHOLESTEROLAEMIA
     Dosage: 40 MG, DAILY
  7. METFORMIN [Concomitant]
     Dosage: 1700 MG, UNK
  8. ACETYLSALICYLIC ACID [Concomitant]
     Dosage: 75 MG, UNK
  9. RANITIDINE [Concomitant]
     Indication: GASTRIC DISORDER
     Dosage: 150 MG, DAILY
     Route: 048
  10. PAROXETIN [Concomitant]
     Indication: DEPRESSION
     Dosage: 30 MG, DAILY
     Route: 048
  11. PAROXETIN [Concomitant]
     Indication: DEPRESSION
  12. TROSPIUM CHLORIDE [Concomitant]
     Dosage: 20 MG, BID
  13. DIPYRIDAMOLE [Concomitant]
     Dosage: 400 MG, DAILY
  14. SYMBICORT [Concomitant]
     Indication: CHRONIC OBSTRUCTIVE PULMONARY DISEASE
  15. DULOXETINE [Concomitant]
     Indication: DEPRESSION
     Dosage: 30 MG, DAILY
  16. ADCAL [Concomitant]

REACTIONS (6)
  - Lower limb fracture [Recovering/Resolving]
  - Tibia fracture [Recovering/Resolving]
  - Ankle fracture [Recovering/Resolving]
  - Osteoarthritis [Unknown]
  - Fall [Recovering/Resolving]
  - Asthenia [Recovering/Resolving]
